FAERS Safety Report 6795318-1 (Version None)
Quarter: 2010Q2

REPORT INFORMATION
  Report Type: 
  Country: None (occurrence: None)
  Receive Date: 20100625
  Receipt Date: 20100614
  Transmission Date: 20101027
  Serious: Yes (Death, Hospitalization)
  Sender: FDA-Public Use
  Company Number: US-JNJFOC-20040105968

PATIENT
  Sex: Female
  Weight: 87.09 kg

DRUGS (9)
  1. REMICADE [Suspect]
     Indication: RHEUMATOID ARTHRITIS
     Route: 042
     Dates: start: 20010412, end: 20030801
  2. METHOTREXATE SODIUM [Concomitant]
  3. CELEXA [Concomitant]
     Indication: DEPRESSION
  4. FOLIC ACID [Concomitant]
  5. ULTRAM [Concomitant]
  6. ZANTAC [Concomitant]
  7. LEVAQUIN [Concomitant]
  8. AZITHROMYCIN [Concomitant]
  9. LOVENOX [Concomitant]

REACTIONS (5)
  - BLOOD CREATINE PHOSPHOKINASE INCREASED [None]
  - LEUKOPENIA [None]
  - LIVER FUNCTION TEST ABNORMAL [None]
  - PNEUMONIA LEGIONELLA [None]
  - THROMBOCYTOPENIA [None]
